FAERS Safety Report 10024030 (Version 1)
Quarter: 2014Q1

REPORT INFORMATION
  Report Type: Spontaneous
  Country: IT (occurrence: None)
  Receive Date: 20140123
  Receipt Date: 20140123
  Transmission Date: 20141002
  Serious: Yes (Life-Threatening)
  Sender: FDA-Public Use
  Company Number: DSM-2013-01205

PATIENT
  Age: 89 Year
  Sex: Female
  Weight: 57 kg

DRUGS (2)
  1. OLMESARTAN MEDOXOMIL [Suspect]
     Indication: HYPERTENSION
     Dosage: 20MG (20MG, 1 IN 1D) ORAL
     Route: 048
     Dates: start: 20130101, end: 20131030
  2. SPIRONOLACTONE [Suspect]
     Dosage: 25MG (25MG, 1 IN 1 D) ORAL
     Route: 048
     Dates: start: 20130101, end: 20131030

REACTIONS (5)
  - Incorrect dose administered [None]
  - Medication error [None]
  - Arrhythmia [None]
  - Sick sinus syndrome [None]
  - Blood potassium increased [None]
